FAERS Safety Report 9352784 (Version 1)
Quarter: 2013Q2

REPORT INFORMATION
  Report Type: Spontaneous
  Country: US (occurrence: None)
  Receive Date: 20130614
  Receipt Date: 20130614
  Transmission Date: 20140414
  Serious: Yes (Other)
  Sender: FDA-Public Use
  Company Number: None

PATIENT
  Age: 62 Year
  Sex: Female

DRUGS (14)
  1. FORTEO 600MCG LILLY [Suspect]
     Indication: OSTEOPOROSIS
     Dosage: 20MCG  QD  SQ
     Route: 058
     Dates: start: 20130521, end: 20130611
  2. CALCIUM + D [Concomitant]
  3. FIBERCON [Concomitant]
  4. ASPIRIN [Concomitant]
  5. IRON [Concomitant]
  6. CARBIDOPA/LEVODOPA [Concomitant]
  7. ALENDRONATE [Concomitant]
  8. KEPPRA [Concomitant]
  9. ZETIA [Concomitant]
  10. LISINOPRIL [Concomitant]
  11. ERYTHROMYCIN [Concomitant]
  12. CELEXA [Concomitant]
  13. OMEPRAZOLE [Concomitant]
  14. TYLENOL [Concomitant]

REACTIONS (5)
  - Dizziness [None]
  - Gait disturbance [None]
  - Dysstasia [None]
  - Fall [None]
  - Head injury [None]
